FAERS Safety Report 22148413 (Version 1)
Quarter: 2023Q1

REPORT INFORMATION
  Report Type: Spontaneous
  Country: US (occurrence: US)
  Receive Date: 20230328
  Receipt Date: 20230328
  Transmission Date: 20230418
  Serious: No
  Sender: FDA-Public Use
  Company Number: US-SA-SAC20230327000284

PATIENT
  Age: 62 Year
  Sex: Male
  Weight: 95.39 kg

DRUGS (1)
  1. DUPIXENT [Suspect]
     Active Substance: DUPILUMAB
     Indication: Dermatitis atopic
     Dosage: 600 MG, 1X
     Route: 058
     Dates: start: 20230319, end: 20230319

REACTIONS (4)
  - Pyrexia [Recovering/Resolving]
  - Sleep disorder [Recovering/Resolving]
  - Diarrhoea [Recovering/Resolving]
  - Duodenogastric reflux [Recovering/Resolving]

NARRATIVE: CASE EVENT DATE: 20230320
